FAERS Safety Report 11649133 (Version 2)
Quarter: 2015Q4

REPORT INFORMATION
  Report Type: Spontaneous
  Country: BR (occurrence: BR)
  Receive Date: 20151021
  Receipt Date: 20151030
  Transmission Date: 20160304
  Serious: Yes (Other)
  Sender: FDA-Public Use
  Company Number: BR-ABBVIE-15P-020-1485411-00

PATIENT
  Sex: Female
  Weight: 62 kg

DRUGS (7)
  1. MODURETIC 5-50 [Concomitant]
     Active Substance: AMILORIDE HYDROCHLORIDE\HYDROCHLOROTHIAZIDE
     Indication: BLOOD PRESSURE ABNORMAL
  2. ATENOLOL. [Concomitant]
     Active Substance: ATENOLOL
     Indication: BLOOD PRESSURE ABNORMAL
  3. CAPTOPRIL. [Concomitant]
     Active Substance: CAPTOPRIL
     Indication: BLOOD PRESSURE ABNORMAL
  4. DEPAKOTE [Suspect]
     Active Substance: DIVALPROEX SODIUM
     Indication: ANXIETY
     Dosage: 250 MG; IN THE MORNING
     Route: 048
  5. RIVOTRIL [Concomitant]
     Active Substance: CLONAZEPAM
     Indication: PRODUCT USED FOR UNKNOWN INDICATION
     Dosage: 8 DROPS; 4 DROPS IN THE MORNING AND 4 DROPS AT NIGHT
  6. DEPAKOTE ER [Suspect]
     Active Substance: DIVALPROEX SODIUM
     Indication: ANXIETY
     Dosage: 500 MG; 250MG IN THE MORNING (10:00 AM OR 10:30 AM) AND 250MG AT NIGHT (00:00 OR 01:00 AM)
     Route: 048
  7. DEPAKOTE [Suspect]
     Active Substance: DIVALPROEX SODIUM
     Indication: ANXIETY
     Dosage: 125 MG; AT NIGHT
     Route: 065
     Dates: start: 201509

REACTIONS (8)
  - Breast cancer [Recovered/Resolved]
  - Feeling abnormal [Unknown]
  - Malaise [Unknown]
  - Product use issue [Unknown]
  - Tremor [Not Recovered/Not Resolved]
  - Medication residue present [Unknown]
  - Hypersensitivity [Unknown]
  - Malabsorption [Unknown]

NARRATIVE: CASE EVENT DATE: 2010
